FAERS Safety Report 12198907 (Version 1)
Quarter: 2016Q1

REPORT INFORMATION
  Report Type: Spontaneous
  Country: US (occurrence: None)
  Receive Date: 20160321
  Receipt Date: 20160321
  Transmission Date: 20160526
  Serious: Yes (Other)
  Sender: FDA-Public Use
  Company Number: None

PATIENT
  Age: 47 Year
  Sex: Male
  Weight: 79.38 kg

DRUGS (5)
  1. TESTOSTERONE CYPIONATE. [Concomitant]
     Active Substance: TESTOSTERONE CYPIONATE
  2. LEVAQUIN [Suspect]
     Active Substance: LEVOFLOXACIN
     Indication: CYSTOSCOPY
     Dosage: 500 MG PER DAY, ONCE DAILY, TAKEN BY MOUTH
     Dates: start: 20160303, end: 20160307
  3. TAMSULOSIN [Concomitant]
     Active Substance: TAMSULOSIN
  4. ALVESCO [Concomitant]
     Active Substance: CICLESONIDE
  5. LEVAQUIN [Suspect]
     Active Substance: LEVOFLOXACIN
     Indication: URINARY TRACT INFECTION
     Dosage: 500 MG PER DAY, ONCE DAILY, TAKEN BY MOUTH
     Dates: start: 20160303, end: 20160307

REACTIONS (3)
  - Pain [None]
  - Gait disturbance [None]
  - Muscle spasms [None]

NARRATIVE: CASE EVENT DATE: 20160306
